FAERS Safety Report 7534727-X (Version None)
Quarter: 2011Q2

REPORT INFORMATION
  Report Type: 
  Country: None (occurrence: None)
  Receive Date: 20110609
  Receipt Date: 20110521
  Transmission Date: 20111010
  Serious: Yes (Other)
  Sender: FDA-Public Use
  Company Number: PHHY2011IT45580

PATIENT
  Age: 22 Year
  Sex: Female

DRUGS (5)
  1. PHENYLEPHRINE HCL [Suspect]
  2. PILOCARPINE [Concomitant]
  3. LAMOTRIGINE [Concomitant]
     Dosage: 100 MG, UNK
  4. LAMOTRIGINE [Concomitant]
     Dosage: 75 MG, UNK
  5. OXCARBAZEPINE [Concomitant]
     Dosage: 900 MG, UNK

REACTIONS (1)
  - PUPILS UNEQUAL [None]
